FAERS Safety Report 9668758 (Version 3)
Quarter: 2015Q2

REPORT INFORMATION
  Report Type: Spontaneous
  Country: US (occurrence: US)
  Receive Date: 20131105
  Receipt Date: 20150408
  Transmission Date: 20150821
  Serious: Yes (Hospitalization, Other)
  Sender: FDA-Public Use
  Company Number: US-BAYER-2013-130767

PATIENT
  Age: 33 Year
  Sex: Female
  Weight: 58.96 kg

DRUGS (1)
  1. MIRENA [Suspect]
     Active Substance: LEVONORGESTREL
     Indication: CONTRACEPTION
     Dosage: 20 MCG/24HR, CONT
     Route: 015
     Dates: start: 20091028, end: 20130403

REACTIONS (17)
  - Pregnancy with contraceptive device [None]
  - Abdominal distension [None]
  - Drug ineffective [None]
  - Depressed mood [Recovered/Resolved]
  - Device dislocation [None]
  - Injury [None]
  - Anhedonia [Recovered/Resolved]
  - High risk pregnancy [None]
  - Vaginal haemorrhage [None]
  - Abortion spontaneous [None]
  - Uterine scar [None]
  - Pain [None]
  - Anxiety [Recovered/Resolved]
  - Uterine perforation [None]
  - Off label use [None]
  - Emotional distress [Recovered/Resolved]
  - Abdominal pain [None]

NARRATIVE: CASE EVENT DATE: 2013
